FAERS Safety Report 5946998-1 (Version None)
Quarter: 2008Q4

REPORT INFORMATION
  Report Type: 
  Country: None (occurrence: None)
  Receive Date: 20081110
  Receipt Date: 20081105
  Transmission Date: 20090506
  Serious: Yes (Other)
  Sender: FDA-Public Use
  Company Number: GB-ASTRAZENECA-2008GB02094

PATIENT
  Sex: Male

DRUGS (1)
  1. FELODIPINE [Suspect]
     Route: 048
     Dates: start: 20081026

REACTIONS (1)
  - THROMBOCYTOPENIA [None]
